FAERS Safety Report 7607162-3 (Version None)
Quarter: 2011Q3

REPORT INFORMATION
  Report Type: 
  Country: None (occurrence: None)
  Receive Date: 20110713
  Receipt Date: 20110704
  Transmission Date: 20111222
  Serious: Yes (Hospitalization, Disabling)
  Sender: FDA-Public Use
  Company Number: ES-ELI_LILLY_AND_COMPANY-ES201107000599

PATIENT
  Sex: Female
  Weight: 89 kg

DRUGS (5)
  1. FORTEO [Suspect]
     Indication: OSTEOPOROSIS
     Dosage: 20 UG, QD
     Route: 058
     Dates: start: 20110611, end: 20110618
  2. KALPRESS PLUS [Concomitant]
     Indication: HYPERTENSION
     Dosage: 20 MG, QD
     Route: 048
     Dates: start: 20040101
  3. OMEPRAZOLE [Concomitant]
     Indication: GASTRIC DISORDER
     Dosage: 20 MG, QD
     Route: 048
  4. PAROXETINE HCL [Concomitant]
     Indication: DEPRESSION
     Dosage: 0.5 DF, QD
     Route: 048
     Dates: start: 20090101
  5. HIDROFEROL [Concomitant]
     Indication: OSTEOPOROSIS
     Dosage: 1 DF, WEEKLY (1/W)
     Route: 048

REACTIONS (4)
  - OEDEMA PERIPHERAL [None]
  - FEELING HOT [None]
  - ABASIA [None]
  - BONE PAIN [None]
